FAERS Safety Report 4638271-9 (Version None)
Quarter: 2005Q2

REPORT INFORMATION
  Report Type: 
  Country: None (occurrence: None)
  Receive Date: 20050418
  Receipt Date: 20050330
  Transmission Date: 20051028
  Serious: Yes (Death, Other)
  Sender: FDA-Public Use
  Company Number: 17182

PATIENT
  Age: 60 Year
  Sex: Female

DRUGS (1)
  1. ADRIAMYCIN PFS [Suspect]
     Indication: BREAST CANCER
     Dosage: 59MG/M2 IV
     Route: 042

REACTIONS (6)
  - DIARRHOEA [None]
  - FACTOR V LEIDEN MUTATION [None]
  - GASTROOESOPHAGEAL REFLUX DISEASE [None]
  - INTESTINAL INFARCTION [None]
  - NEUTROPENIA [None]
  - PROTEIN C DEFICIENCY [None]
